FAERS Safety Report 5562717-5 (Version None)
Quarter: 2007Q4

REPORT INFORMATION
  Report Type: 
  Country: None (occurrence: None)
  Receive Date: 20071211
  Receipt Date: 20071211
  Transmission Date: 20080405
  Serious: No
  Sender: FDA-Public Use
  Company Number: None

PATIENT
  Sex: Male

DRUGS (1)
  1. LEVAQUIN [Suspect]

REACTIONS (14)
  - ABASIA [None]
  - ADVERSE DRUG REACTION [None]
  - ARTHRALGIA [None]
  - HEAD TITUBATION [None]
  - HEADACHE [None]
  - ILL-DEFINED DISORDER [None]
  - INSOMNIA [None]
  - LOSS OF EMPLOYMENT [None]
  - NERVOUS SYSTEM DISORDER [None]
  - NEUROPATHY [None]
  - NEUROTOXICITY [None]
  - PAIN [None]
  - TENDONITIS [None]
  - VISUAL DISTURBANCE [None]
